FAERS Safety Report 7637206-4 (Version None)
Quarter: 2011Q3

REPORT INFORMATION
  Report Type: 
  Country: None (occurrence: None)
  Receive Date: 20110726
  Receipt Date: 20110713
  Transmission Date: 20111222
  Serious: Yes (Other)
  Sender: FDA-Public Use
  Company Number: PHHY2011US51723

PATIENT
  Sex: Male
  Weight: 114.74 kg

DRUGS (16)
  1. SIMVASTATIN [Concomitant]
  2. POTASSIUM CHLORIDE [Concomitant]
  3. GLEEVEC [Suspect]
     Indication: CHRONIC MYELOID LEUKAEMIA
     Dosage: 800 MG, DAILY
     Route: 048
     Dates: start: 20090401
  4. CARAFATE [Concomitant]
  5. NOVOLOG [Concomitant]
  6. LISINOPRIL [Concomitant]
  7. ASPIRIN [Concomitant]
  8. FUROSEMIDE [Concomitant]
  9. ASPIRIN [Suspect]
     Route: 048
     Dates: end: 20110529
  10. CALCIUM ACETATE [Concomitant]
  11. FISH OIL [Concomitant]
  12. METOPROLOL SUCCINATE [Concomitant]
  13. LEVOTHYROXINE SODIUM [Concomitant]
  14. PLAVIX [Suspect]
     Route: 048
     Dates: end: 20110529
  15. PEPCID [Concomitant]
  16. METFORMIN HYDROCHLORIDE [Concomitant]

REACTIONS (5)
  - HAEMORRHOIDS [None]
  - HAEMATOCHEZIA [None]
  - FUNGAL INFECTION [None]
  - RECTAL HAEMORRHAGE [None]
  - GASTROINTESTINAL ULCER [None]
